FAERS Safety Report 18904705 (Version 1)
Quarter: 2021Q1

REPORT INFORMATION
  Report Type: Spontaneous
  Country: AT (occurrence: AT)
  Receive Date: 20210217
  Receipt Date: 20210217
  Transmission Date: 20210420
  Serious: Yes (Other)
  Sender: FDA-Public Use
  Company Number: AT-PURDUE-USA-2021-0212709

PATIENT
  Age: 77 Year
  Sex: Female
  Weight: 102 kg

DRUGS (5)
  1. SYNJARDY [Concomitant]
     Active Substance: EMPAGLIFLOZIN\METFORMIN HYDROCHLORIDE
     Indication: TYPE 2 DIABETES MELLITUS
     Dosage: 2 UNIT, DAILY (DOSAGE TEXT 2 DOSAGE FORMS DAILY; 1 DOSAGE FORM CONTAINS 15 MG EMPAGLIFLOZIN AND 100)
  2. DIAMICRON [Concomitant]
     Active Substance: GLICLAZIDE
     Indication: TYPE 2 DIABETES MELLITUS
     Dosage: UNK
  3. ACTOS [Concomitant]
     Active Substance: PIOGLITAZONE HYDROCHLORIDE
     Indication: TYPE 2 DIABETES MELLITUS
     Dosage: UNK
  4. BUPRENORPHINE. [Suspect]
     Active Substance: BUPRENORPHINE
     Indication: PAIN
     Dosage: 1 UNIT, WEEKLY (DOSAGE TEXT: 1 DF = 20 MICROGRAM BUPRENORPHINE PER HOUR FOR 7 DAYS)(STRENGTH 20MG)
     Route: 062
     Dates: end: 20201224
  5. TRULICITY [Concomitant]
     Active Substance: DULAGLUTIDE
     Indication: TYPE 2 DIABETES MELLITUS
     Dosage: 1.5 MG, WEEKLY

REACTIONS (3)
  - Feeling abnormal [Recovered/Resolved]
  - Product quality issue [Unknown]
  - Nausea [Recovered/Resolved]

NARRATIVE: CASE EVENT DATE: 20201223
